FAERS Safety Report 23329578 (Version 1)
Quarter: 2023Q4

REPORT INFORMATION
  Report Type: Spontaneous
  Country: US (occurrence: US)
  Receive Date: 20231222
  Receipt Date: 20231222
  Transmission Date: 20240110
  Serious: No
  Sender: FDA-Public Use
  Company Number: US-TEVA-2023-US-2947146

PATIENT
  Age: 23 Year

DRUGS (3)
  1. UZEDY [Suspect]
     Active Substance: RISPERIDONE
     Indication: Bipolar disorder
     Dosage: DOSAGE TEXT: 200/0.56 MG/ML,EVERY 2 MONTHS
     Route: 058
  2. UZEDY [Suspect]
     Active Substance: RISPERIDONE
     Indication: Mania
  3. UZEDY [Suspect]
     Active Substance: RISPERIDONE
     Indication: Psychogenic seizure

REACTIONS (1)
  - Off label use [Unknown]
